FAERS Safety Report 9801920 (Version 2)
Quarter: 2014Q1

REPORT INFORMATION
  Report Type: Spontaneous
  Country: US (occurrence: US)
  Receive Date: 20140107
  Receipt Date: 20140107
  Transmission Date: 20141002
  Serious: No
  Sender: FDA-Public Use
  Company Number: US-ALLERGAN-1312006US

PATIENT
  Sex: Female

DRUGS (1)
  1. ACZONE [Suspect]
     Indication: ACNE
     Dosage: UNK UNK, BID
     Route: 061

REACTIONS (2)
  - Acne [Unknown]
  - Dry skin [Unknown]
